FAERS Safety Report 5827434-2 (Version None)
Quarter: 2008Q3

REPORT INFORMATION
  Report Type: 
  Country: None (occurrence: None)
  Receive Date: 20080725
  Receipt Date: 20080714
  Transmission Date: 20090109
  Serious: Yes (Hospitalization)
  Sender: FDA-Public Use
  Company Number: 2007BI012948

PATIENT
  Age: 54 Year
  Sex: Female
  Weight: 108.8633 kg

DRUGS (3)
  1. AVONEX [Suspect]
     Indication: MULTIPLE SCLEROSIS
     Dosage: 30 UG;QW;IM, 30 UG;QW;IM, 30 UG;QW;IM
     Route: 030
     Dates: start: 20000101, end: 20030101
  2. AVONEX [Suspect]
     Indication: MULTIPLE SCLEROSIS
     Dosage: 30 UG;QW;IM, 30 UG;QW;IM, 30 UG;QW;IM
     Route: 030
     Dates: start: 20040401, end: 20060701
  3. AVONEX [Suspect]
     Indication: MULTIPLE SCLEROSIS
     Dosage: 30 UG;QW;IM, 30 UG;QW;IM, 30 UG;QW;IM
     Route: 030
     Dates: start: 20070101

REACTIONS (10)
  - CONDITION AGGRAVATED [None]
  - CONTUSION [None]
  - FALL [None]
  - FOOT FRACTURE [None]
  - INSOMNIA [None]
  - JOINT SWELLING [None]
  - MULTIPLE SCLEROSIS [None]
  - MUSCLE ATROPHY [None]
  - THROAT IRRITATION [None]
  - WEIGHT INCREASED [None]
